FAERS Safety Report 22388791 (Version 1)
Quarter: 2023Q2

REPORT INFORMATION
  Report Type: Report from Study
  Country: US (occurrence: US)
  Receive Date: 20230531
  Receipt Date: 20230531
  Transmission Date: 20230721
  Serious: Yes (Other)
  Sender: FDA-Public Use
  Company Number: US-002147023-NVSC2023US121707

PATIENT
  Sex: Male

DRUGS (10)
  1. CLOBETASOL [Suspect]
     Active Substance: CLOBETASOL
     Indication: Psoriasis
     Dosage: UNK
     Route: 061
  2. CLOBETASOL [Suspect]
     Active Substance: CLOBETASOL
     Indication: Psoriasis
     Dosage: UNK (SCALP)
     Route: 065
  3. BETAMETHASONE [Suspect]
     Active Substance: BETAMETHASONE
     Indication: Psoriasis
     Dosage: UNK
     Route: 065
  4. METHOTREXATE [Suspect]
     Active Substance: METHOTREXATE
     Indication: Psoriasis
     Dosage: UNK
     Route: 065
     Dates: start: 202206
  5. ASPIRIN [Suspect]
     Active Substance: ASPIRIN
     Indication: Psoriasis
     Dosage: UNK (DELAYED RELEASE (DR/EC))
     Route: 065
  6. LORATADINE [Suspect]
     Active Substance: LORATADINE
     Indication: Psoriasis
     Dosage: UNK
     Route: 065
  7. HYDROCHLOROTHIAZIDE [Suspect]
     Active Substance: HYDROCHLOROTHIAZIDE
     Indication: Psoriasis
     Dosage: UNK
     Route: 065
  8. LEVETIRACETAM [Suspect]
     Active Substance: LEVETIRACETAM
     Indication: Psoriasis
     Dosage: UNK
     Route: 065
  9. METOPROLOL [Suspect]
     Active Substance: METOPROLOL
     Indication: Psoriasis
     Dosage: UNK
     Route: 065
  10. SIMVASTATIN [Suspect]
     Active Substance: SIMVASTATIN
     Indication: Psoriasis
     Dosage: UNK
     Route: 065

REACTIONS (11)
  - Gastric ulcer [Unknown]
  - Abdominal pain upper [Unknown]
  - Psoriasis [Unknown]
  - Post inflammatory pigmentation change [Unknown]
  - Pruritus [Unknown]
  - Lichenification [Unknown]
  - Skin exfoliation [Unknown]
  - Dermatitis exfoliative generalised [Unknown]
  - Papule [Unknown]
  - Therapeutic product effect incomplete [Unknown]
  - Treatment failure [Unknown]
